FAERS Safety Report 4849324-4 (Version None)
Quarter: 2005Q4

REPORT INFORMATION
  Report Type: 
  Country: None (occurrence: None)
  Receive Date: 20051209
  Receipt Date: 20051125
  Transmission Date: 20060501
  Serious: Yes (Hospitalization)
  Sender: FDA-Public Use
  Company Number: US-AMGEN-US159182

PATIENT
  Sex: Male

DRUGS (11)
  1. ENBREL [Suspect]
     Indication: RHEUMATOID ARTHRITIS
     Route: 058
     Dates: start: 20000301, end: 20050216
  2. LEFLUNOMIDE [Suspect]
     Route: 048
     Dates: start: 20000126
  3. HYDROXYCHLOROQUINE SULFATE [Concomitant]
     Route: 048
     Dates: start: 20021002
  4. ASPIRIN [Concomitant]
     Route: 048
     Dates: start: 19990527
  5. ATENOLOL [Concomitant]
     Route: 048
     Dates: start: 19990527
  6. CHOLESTYRAMINE [Concomitant]
     Route: 065
     Dates: start: 20050119
  7. DILTIAZEM HCL [Concomitant]
     Route: 065
     Dates: start: 19990610
  8. FOLIC ACID [Concomitant]
     Route: 065
     Dates: start: 19990527
  9. INSULIN [Concomitant]
     Route: 065
     Dates: start: 19991228
  10. ISOSORBIDE DINITRATE [Concomitant]
     Route: 065
     Dates: start: 20010925
  11. LISINOPRIL [Concomitant]
     Route: 065
     Dates: start: 20010102

REACTIONS (3)
  - ARTHRALGIA [None]
  - LIVER FUNCTION TEST ABNORMAL [None]
  - MALAISE [None]
